FAERS Safety Report 21296550 (Version 1)
Quarter: 2022Q3

REPORT INFORMATION
  Report Type: Spontaneous
  Country: US (occurrence: US)
  Receive Date: 20220906
  Receipt Date: 20220906
  Transmission Date: 20221027
  Serious: No
  Sender: FDA-Public Use
  Company Number: US-AUROBINDO-AUR-APL-2022-007645

PATIENT
  Sex: Male

DRUGS (2)
  1. AMLODIPINE [Suspect]
     Active Substance: AMLODIPINE BESYLATE
     Indication: Product used for unknown indication
     Dosage: UNK
     Route: 065
  2. LENVIMA [Suspect]
     Active Substance: LENVATINIB
     Indication: Hepatocellular carcinoma
     Dosage: UNK UNK, ONCE A DAY
     Route: 065
     Dates: start: 20211123

REACTIONS (9)
  - Heart rate decreased [Unknown]
  - Hypertension [Unknown]
  - Upper-airway cough syndrome [Unknown]
  - Dysphonia [Unknown]
  - Fatigue [Unknown]
  - Arthralgia [Unknown]
  - Dry mouth [Unknown]
  - Decreased appetite [Unknown]
  - Swelling [Recovered/Resolved]

NARRATIVE: CASE EVENT DATE: 20211201
